FAERS Safety Report 6188948-1 (Version None)
Quarter: 2009Q2

REPORT INFORMATION
  Report Type: 
  Country: None (occurrence: None)
  Receive Date: 20090513
  Receipt Date: 20090504
  Transmission Date: 20091009
  Serious: Yes (Other)
  Sender: FDA-Public Use
  Company Number: PHHY2009IE11319

PATIENT
  Sex: Female

DRUGS (9)
  1. CLOZARIL [Suspect]
     Indication: SCHIZOPHRENIA
     Dosage: UNK
     Dates: start: 20090302
  2. CLOZARIL [Suspect]
     Dosage: 18.75MANE AND 12.5 NOCTE
     Dates: start: 20090309
  3. CLOZARIL [Suspect]
     Dosage: 18.75MG MANE AND 37.5 MG NOCTE
     Dates: end: 20090326
  4. LOSEC [Concomitant]
     Dosage: 20 MG
     Route: 048
     Dates: start: 20081006
  5. XANAX [Concomitant]
  6. ELTROXIN [Concomitant]
     Indication: HYPOTHYROIDISM
     Dosage: 25MCG
     Route: 048
     Dates: start: 20081006
  7. LAMICTAL [Concomitant]
     Indication: EPILEPSY
     Dosage: 275 MG, BID
     Route: 048
     Dates: start: 20081006
  8. SERENACE [Concomitant]
     Dosage: 5MG
     Route: 048
  9. ATIVAN [Concomitant]
     Dosage: 2 MG, PRN

REACTIONS (5)
  - EATING DISORDER [None]
  - FLUID INTAKE REDUCED [None]
  - MENTAL DISORDER [None]
  - NEUTROPHIL COUNT DECREASED [None]
  - WHITE BLOOD CELL COUNT DECREASED [None]
